FAERS Safety Report 23683917 (Version 4)
Quarter: 2024Q2

REPORT INFORMATION
  Report Type: Spontaneous
  Country: US (occurrence: US)
  Receive Date: 20240328
  Receipt Date: 20240524
  Transmission Date: 20240716
  Serious: No
  Sender: FDA-Public Use
  Company Number: US-LUPIN PHARMACEUTICALS INC.-2024-02472

PATIENT

DRUGS (3)
  1. LANTHANUM CARBONATE [Suspect]
     Active Substance: LANTHANUM CARBONATE
     Indication: Renal failure
     Dosage: 1 DOSAGE FORM, TID, WITH MEALS
     Route: 065
  2. LANTHANUM CARBONATE [Suspect]
     Active Substance: LANTHANUM CARBONATE
     Dosage: 1 DOSAGE FORM, TID, WITH MEALS
     Route: 065
  3. LANTHANUM CARBONATE [Suspect]
     Active Substance: LANTHANUM CARBONATE
     Dosage: 1 DOSAGE FORM, TID, WITH MEALS
     Route: 065

REACTIONS (4)
  - Nausea [Unknown]
  - Product taste abnormal [Unknown]
  - Product quality issue [Unknown]
  - Product packaging issue [Unknown]
